FAERS Safety Report 24693701 (Version 1)
Quarter: 2024Q4

REPORT INFORMATION
  Report Type: Spontaneous
  Country: US (occurrence: US)
  Receive Date: 20241204
  Receipt Date: 20241204
  Transmission Date: 20250115
  Serious: No
  Sender: Steriscience PTE
  Company Number: US-STERISCIENCE B.V.-2024-ST-000349

PATIENT
  Age: 67 Year
  Sex: Male

DRUGS (10)
  1. BUPIVACAINE [Suspect]
     Active Substance: BUPIVACAINE
     Indication: Pruritus
     Dosage: BILATERAL GONB PROCEDURE WITH 0.25%, A TOTAL OF 6ML (3ML PER SIDE) INTO THE POSTERIOR SCALP USING A
  2. ROFLUMILAST [Concomitant]
     Active Substance: ROFLUMILAST
     Indication: Pruritus
     Dosage: UNK, OVER NEXT 12 MONTHS
     Route: 061
  3. NALTREXONE [Concomitant]
     Active Substance: NALTREXONE
     Indication: Pruritus
     Dosage: UNK, OVER NEXT 12 MONTHS
     Route: 065
  4. TAPINAROF [Concomitant]
     Active Substance: TAPINAROF
     Indication: Pruritus
     Dosage: UNK, OVER NEXT 12 MONTHS
     Route: 065
  5. CAPSAICIN [Concomitant]
     Active Substance: CAPSAICIN
     Indication: Pruritus
     Dosage: UNK, OVER NEXT 12 MONTHS
     Route: 061
  6. METHOTREXATE [Concomitant]
     Active Substance: METHOTREXATE
     Indication: Pruritus
     Dosage: UNK, OVER NEXT 12 MONTHS
     Route: 048
  7. DUPILUMAB [Concomitant]
     Active Substance: DUPILUMAB
     Indication: Pruritus
     Dosage: UNK, OVER NEXT 12 MONTHS
     Route: 065
  8. GABAPENTIN [Concomitant]
     Active Substance: GABAPENTIN
     Indication: Pruritus
     Dosage: UNK, OVER NEXT 12 MONTHS
     Route: 065
  9. RUXOLITINIB [Concomitant]
     Active Substance: RUXOLITINIB
     Indication: Pruritus
     Dosage: UNK, OVER NEXT 12 MONTHS
     Route: 061
  10. TACROLIMUS [Concomitant]
     Active Substance: TACROLIMUS
     Indication: Pruritus
     Dosage: UNK, OVER NEXT 12 MONTHS
     Route: 061

REACTIONS (1)
  - Off label use [Unknown]
